FAERS Safety Report 16597872 (Version 1)
Quarter: 2019Q3

REPORT INFORMATION
  Report Type: Spontaneous
  Country: FR (occurrence: FR)
  Receive Date: 20190719
  Receipt Date: 20190719
  Transmission Date: 20191004
  Serious: Yes (Hospitalization)
  Sender: FDA-Public Use
  Company Number: FR-PFIZER INC-2019304166

PATIENT
  Age: 73 Year
  Sex: Male
  Weight: 75 kg

DRUGS (2)
  1. XANAX [Suspect]
     Active Substance: ALPRAZOLAM
     Indication: SUICIDE ATTEMPT
     Dosage: 20 DF, SINGLE
     Route: 048
     Dates: start: 20170715, end: 20170715
  2. IMOVANE [Suspect]
     Active Substance: ZOPICLONE
     Indication: SUICIDE ATTEMPT
     Dosage: 14 DF, SINGLE
     Route: 048
     Dates: start: 20170715, end: 20170715

REACTIONS (5)
  - Somnolence [Recovered/Resolved]
  - Oxygen saturation abnormal [Recovered/Resolved]
  - Intentional overdose [Recovered/Resolved]
  - Toxicity to various agents [Recovered/Resolved]
  - Bundle branch block right [Recovered/Resolved]

NARRATIVE: CASE EVENT DATE: 20170715
